FAERS Safety Report 6810965-6 (Version None)
Quarter: 2010Q2

REPORT INFORMATION
  Report Type: 
  Country: None (occurrence: None)
  Receive Date: 20100630
  Receipt Date: 20080916
  Transmission Date: 20101027
  Serious: No
  Sender: FDA-Public Use
  Company Number: US-PFIZER INC-2008078748

PATIENT
  Age: 62 Year
  Sex: Female
  Weight: 74.09 kg

DRUGS (4)
  1. ESTRING [Suspect]
     Indication: DYSPAREUNIA
     Dates: start: 20070901
  2. THYROID TAB [Concomitant]
  3. ESTROGENS [Concomitant]
  4. PROGESTERONE [Concomitant]

REACTIONS (1)
  - VAGINAL ODOUR [None]
